FAERS Safety Report 15821602 (Version 1)
Quarter: 2019Q1

REPORT INFORMATION
  Report Type: Spontaneous
  Country: CA (occurrence: CA)
  Receive Date: 20190114
  Receipt Date: 20190114
  Transmission Date: 20190417
  Serious: Yes (Other)
  Sender: FDA-Public Use
  Company Number: CA-PFIZER INC-2019012984

PATIENT
  Age: 49 Year
  Sex: Female

DRUGS (6)
  1. DOMPERIDONE [Concomitant]
     Active Substance: DOMPERIDONE
     Dosage: UNK
  2. TOPEX (BENZOCAINE) [Concomitant]
     Active Substance: BENZOCAINE
     Dosage: UNK
  3. RABEPRAZOLE [Concomitant]
     Active Substance: RABEPRAZOLE
     Dosage: UNK
  4. EPINEPHRINE/LIDOCAINE HYDROCHLORIDE [Suspect]
     Active Substance: EPINEPHRINE\LIDOCAINE HYDROCHLORIDE
     Indication: LOCAL ANAESTHESIA
     Dosage: UNK
     Route: 004
  5. RAMIPRIL. [Concomitant]
     Active Substance: RAMIPRIL
     Dosage: UNK
  6. DIAMICRON [Concomitant]
     Active Substance: GLICLAZIDE
     Dosage: UNK

REACTIONS (5)
  - Drug ineffective [Unknown]
  - Swelling [Unknown]
  - Trismus [Unknown]
  - Pain [Unknown]
  - Post procedural infection [Unknown]
